FAERS Safety Report 12254381 (Version 1)
Quarter: 2016Q2

REPORT INFORMATION
  Report Type: Report from Study
  Country: US (occurrence: US)
  Receive Date: 20160411
  Receipt Date: 20160411
  Transmission Date: 20160815
  Serious: No
  Sender: FDA-Public Use
  Company Number: US-ABBVIE-16P-163-1546898-00

PATIENT
  Age: 49 Year
  Sex: Male

DRUGS (2)
  1. LEVODOPA [Concomitant]
     Active Substance: LEVODOPA
     Indication: PARKINSON^S DISEASE
     Route: 048
  2. DUOPA [Suspect]
     Active Substance: CARBIDOPA\LEVODOPA
     Indication: PARKINSON^S DISEASE
     Route: 065

REACTIONS (7)
  - Fatigue [Unknown]
  - On and off phenomenon [Unknown]
  - Device occlusion [Recovered/Resolved]
  - Asthenia [Unknown]
  - Muscle rigidity [Unknown]
  - Back pain [Unknown]
  - Dyskinesia [Unknown]

NARRATIVE: CASE EVENT DATE: 201601
